FAERS Safety Report 5025628-X (Version None)
Quarter: 2006Q2

REPORT INFORMATION
  Report Type: 
  Country: None (occurrence: None)
  Receive Date: 20060426
  Receipt Date: 20060319
  Transmission Date: 20061013
  Serious: Yes (Other)
  Sender: FDA-Public Use
  Company Number: 2006038564

PATIENT
  Age: 47 Year
  Sex: Male
  Weight: 82.5547 kg

DRUGS (2)
  1. LYRICA [Suspect]
     Indication: PANCREATITIS CHRONIC
     Dosage: 375 MG (1 D)
     Dates: start: 20060316
  2. DILAUDID [Concomitant]

REACTIONS (1)
  - WEIGHT INCREASED [None]
